FAERS Safety Report 5199269-8 (Version None)
Quarter: 2006Q4

REPORT INFORMATION
  Report Type: 
  Country: None (occurrence: None)
  Receive Date: 20060929
  Receipt Date: 20051222
  Transmission Date: 20070319
  Serious: Yes (Other)
  Sender: FDA-Public Use
  Company Number: US-JNJFOC-20051102176

PATIENT
  Age: 22 Year
  Sex: Female
  Weight: 55.3388 kg

DRUGS (1)
  1. ORTHO TRI-CYCLEN LO [Suspect]
     Indication: ACNE
     Dosage: 1 DOSE(S), 1 IN 1 DAY, ORAL
     Route: 048
     Dates: start: 20050911, end: 20051024

REACTIONS (3)
  - DEEP VEIN THROMBOSIS [None]
  - DYSMENORRHOEA [None]
  - NAUSEA [None]
